FAERS Safety Report 6120140-9 (Version None)
Quarter: 2009Q1

REPORT INFORMATION
  Report Type: 
  Country: None (occurrence: None)
  Receive Date: 20090312
  Receipt Date: 20090302
  Transmission Date: 20090719
  Serious: Yes (Other)
  Sender: FDA-Public Use
  Company Number: 208446

PATIENT
  Sex: Male

DRUGS (11)
  1. CARBOPLATIN [Suspect]
     Indication: LARYNGEAL CANCER
     Dosage: INTRAVENOUS
     Route: 042
     Dates: start: 20081117, end: 20081117
  2. CARBOPLATIN [Suspect]
     Indication: LARYNGEAL CANCER
     Dosage: INTRAVENOUS
     Route: 042
     Dates: start: 20090105, end: 20090105
  3. ERBITUX [Suspect]
     Indication: LARYNGEAL CANCER
     Dates: start: 20081117, end: 20081117
  4. ERBITUX [Suspect]
     Indication: LARYNGEAL CANCER
     Dates: start: 20090105, end: 20090105
  5. TAXOTERE [Suspect]
     Indication: LARYNGEAL CANCER
     Dosage: 120 MG, ^CYC^, INTRAVENOUS; ( ^CYC^ ) INTRAVENOUS
     Route: 042
     Dates: start: 20081117, end: 20081117
  6. TAXOTERE [Suspect]
     Indication: LARYNGEAL CANCER
     Dosage: 120 MG, ^CYC^, INTRAVENOUS; ( ^CYC^ ) INTRAVENOUS
     Route: 042
     Dates: start: 20090105, end: 20090105
  7. DEXAMETHASONE [Concomitant]
  8. ZOFRAN [Concomitant]
  9. (TAGAMET /00397401/) [Concomitant]
  10. TYLENOL (CAPLET) [Concomitant]
  11. DIPHENHYDRAMINE HCL INJ., USP, 50 MG/ML (MCPHERSON) (DIPHENHYDRAMINE) [Concomitant]

REACTIONS (2)
  - DYSPNOEA [None]
  - THROAT TIGHTNESS [None]
